FAERS Safety Report 5534808-6 (Version None)
Quarter: 2007Q4

REPORT INFORMATION
  Report Type: 
  Country: None (occurrence: None)
  Receive Date: 20071130
  Receipt Date: 20071101
  Transmission Date: 20080405
  Serious: Yes (Other)
  Sender: FDA-Public Use
  Company Number: A-JP2007-17351

PATIENT
  Age: 78 Year
  Sex: Female
  Weight: 47.4 kg

DRUGS (10)
  1. TRACLEER [Suspect]
     Indication: PULMONARY HYPERTENSION
     Dosage: 62.5 MG, QD, ORAL, 62.5 MG, QD, ORAL
     Route: 048
     Dates: start: 20070516, end: 20070523
  2. TRACLEER [Suspect]
     Indication: PULMONARY HYPERTENSION
     Dosage: 62.5 MG, QD, ORAL, 62.5 MG, QD, ORAL
     Route: 048
     Dates: start: 20070606, end: 20070711
  3. CEVIMELINE HYDROCHLORIDE(CEVIMELINE HYDROCHLORIDE) [Suspect]
  4. TOCOPHEROL (TOCOPHEROL) [Concomitant]
  5. SARPOGRELATE (SARPOGRELATE) [Concomitant]
  6. BIFIDOBACTERIUM BIFIDUM (BIFIDOBACTERIUM BIFIDUM) [Concomitant]
  7. LANSOPRAZOLE [Concomitant]
  8. DILTIAZEM HCL [Concomitant]
  9. TRIMEBUTINE (TRIMEBUTINE) [Concomitant]
  10. OXYGEN (OXYGEN) [Concomitant]

REACTIONS (3)
  - DIARRHOEA [None]
  - DYSPHORIA [None]
  - SUBILEUS [None]
